FAERS Safety Report 23129896 (Version 4)
Quarter: 2024Q1

REPORT INFORMATION
  Report Type: Spontaneous
  Country: US (occurrence: US)
  Receive Date: 20231031
  Receipt Date: 20240226
  Transmission Date: 20240410
  Serious: Yes (Other)
  Sender: FDA-Public Use
  Company Number: US-PFIZER INC-PV202300177788

PATIENT
  Age: 68 Year
  Sex: Female
  Weight: 84.807 kg

DRUGS (3)
  1. CIBINQO [Suspect]
     Active Substance: ABROCITINIB
     Indication: Eczema
     Dosage: 20 MG, 1X/DAY
     Route: 048
     Dates: start: 202210
  2. CIBINQO [Suspect]
     Active Substance: ABROCITINIB
     Indication: Dermatitis atopic
     Dosage: UNK
     Dates: start: 20231120
  3. CIBINQO [Suspect]
     Active Substance: ABROCITINIB
     Dosage: 100 MG, 1X/DAY
     Route: 048

REACTIONS (8)
  - Glaucoma [Unknown]
  - Cataract [Recovered/Resolved]
  - Vision blurred [Unknown]
  - Therapeutic product effect incomplete [Unknown]
  - Off label use [Unknown]
  - Skin hyperpigmentation [Unknown]
  - Condition aggravated [Unknown]
  - Skin disorder [Unknown]

NARRATIVE: CASE EVENT DATE: 20221001
